FAERS Safety Report 18021257 (Version 1)
Quarter: 2020Q3

REPORT INFORMATION
  Report Type: Spontaneous
  Country: IT (occurrence: IT)
  Receive Date: 20200714
  Receipt Date: 20200714
  Transmission Date: 20201103
  Serious: Yes (Death, Other)
  Sender: FDA-Public Use
  Company Number: IT-TEVA-2020-IT-1799811

PATIENT
  Age: 66 Year
  Sex: Male

DRUGS (1)
  1. SILDENAFIL. [Suspect]
     Active Substance: SILDENAFIL
     Indication: DRUG ABUSE
     Dosage: 50MG?100MG ADMINISTERED 30?60 MINUTES BEFORE INTERCOURSE
     Route: 048

REACTIONS (3)
  - Drug level increased [Unknown]
  - Cardiac tamponade [Fatal]
  - Drug abuse [Unknown]
